FAERS Safety Report 8367292-8 (Version None)
Quarter: 2012Q2

REPORT INFORMATION
  Report Type: 
  Country: None (occurrence: None)
  Receive Date: 20120517
  Receipt Date: 20120508
  Transmission Date: 20120825
  Serious: No
  Sender: FDA-Public Use
  Company Number: US-ASTRAZENECA-2012SE26325

PATIENT
  Age: 65 Year
  Sex: Female
  Weight: 70.3 kg

DRUGS (2)
  1. SYMBICORT [Suspect]
     Indication: ASTHMA
     Dosage: 80-4.5 MCG TWO PUFFS TWICE A DAY
     Route: 055
  2. SINGULAIR [Concomitant]
     Indication: ASTHMA

REACTIONS (3)
  - PHARYNGEAL DISORDER [None]
  - DYSPHONIA [None]
  - OFF LABEL USE [None]
